FAERS Safety Report 25147126 (Version 2)
Quarter: 2025Q4

REPORT INFORMATION
  Report Type: Spontaneous
  Country: EU (occurrence: EU)
  Receive Date: 20250401
  Receipt Date: 20251128
  Transmission Date: 20260118
  Serious: Yes (Life-Threatening, Other)
  Sender: BOEHRINGER INGELHEIM
  Company Number: EU-BoehringerIngelheim-2022-BI-158271

PATIENT
  Age: 69 Year
  Sex: Female

DRUGS (4)
  1. OFEV [Suspect]
     Active Substance: NINTEDANIB
     Indication: Idiopathic pulmonary fibrosis
     Dates: start: 20210914, end: 20211110
  2. OFEV [Suspect]
     Active Substance: NINTEDANIB
     Indication: Pulmonary fibrosis
     Dates: start: 20211124, end: 20211207
  3. OFEV [Suspect]
     Active Substance: NINTEDANIB
     Dates: start: 20211208, end: 202411
  4. OFEV [Suspect]
     Active Substance: NINTEDANIB

REACTIONS (5)
  - Pancreatic neoplasm [Unknown]
  - Pancreatic disorder [Unknown]
  - Gastrointestinal disorder [Unknown]
  - Liver disorder [Recovered/Resolved]
  - Anaemia [Unknown]

NARRATIVE: CASE EVENT DATE: 20211110
